FAERS Safety Report 18128203 (Version 2)
Quarter: 2020Q4

REPORT INFORMATION
  Report Type: Spontaneous
  Country: US (occurrence: US)
  Receive Date: 20200810
  Receipt Date: 20201209
  Transmission Date: 20210113
  Serious: Yes (Other)
  Sender: FDA-Public Use
  Company Number: US-GILEAD-2020-0489279

PATIENT
  Age: 53 Year
  Sex: Male
  Weight: 99.8 kg

DRUGS (23)
  1. MELOXICAM. [Concomitant]
     Active Substance: MELOXICAM
  2. AMITRIPTYLINE [Concomitant]
     Active Substance: AMITRIPTYLINE
  3. BACLOFEN. [Concomitant]
     Active Substance: BACLOFEN
  4. OXYCODONE/APAP [OXYCODONE HYDROCHLORIDE;PARACETAMOL] [Concomitant]
  5. VALACYCLOVIR HCL [Concomitant]
     Active Substance: VALACYCLOVIR HYDROCHLORIDE
  6. ATRIPLA [Suspect]
     Active Substance: EFAVIRENZ\EMTRICITABINE\TENOFOVIR DISOPROXIL FUMARATE
     Indication: HIV INFECTION
     Dosage: UNK
     Route: 048
     Dates: start: 20121009, end: 20130116
  7. GABAPENTIN. [Concomitant]
     Active Substance: GABAPENTIN
  8. TRAMADOL. [Concomitant]
     Active Substance: TRAMADOL
  9. LEVAQUIN [Concomitant]
     Active Substance: LEVOFLOXACIN
  10. VENLAFAXINE [Concomitant]
     Active Substance: VENLAFAXINE HYDROCHLORIDE
  11. ASPIRIN (E.C.) [Concomitant]
     Active Substance: ASPIRIN
  12. CRESTOR [Concomitant]
     Active Substance: ROSUVASTATIN CALCIUM
  13. HYDROCODONE BITARTRATE AND ACETAMINOPHEN [Concomitant]
     Active Substance: ACETAMINOPHEN\HYDROCODONE BITARTRATE
  14. NAPROXEN. [Concomitant]
     Active Substance: NAPROXEN
  15. CLINDAMYCIN. [Concomitant]
     Active Substance: CLINDAMYCIN
  16. IBUPROFEN. [Concomitant]
     Active Substance: IBUPROFEN
  17. TRUVADA [Suspect]
     Active Substance: EMTRICITABINE\TENOFOVIR DISOPROXIL FUMARATE
     Indication: HIV INFECTION
     Dosage: UNK
     Route: 048
     Dates: start: 2008, end: 2010
  18. BIKTARVY [Concomitant]
     Active Substance: BICTEGRAVIR SODIUM\EMTRICITABINE\TENOFOVIR ALAFENAMIDE FUMARATE
  19. AMOXICILLIN. [Concomitant]
     Active Substance: AMOXICILLIN
  20. CEPHALEXINE [Concomitant]
     Active Substance: CEPHALEXIN
  21. PENICILLIN B [Concomitant]
     Active Substance: PHENETICILLIN
  22. PROAIR HFA [Concomitant]
     Active Substance: ALBUTEROL SULFATE
  23. VIREAD [Suspect]
     Active Substance: TENOFOVIR DISOPROXIL FUMARATE
     Indication: HIV INFECTION
     Dosage: UNK
     Route: 048
     Dates: start: 2004, end: 2008

REACTIONS (8)
  - Osteoporosis [Unknown]
  - Emotional distress [Unknown]
  - Pain [Unknown]
  - Anxiety [Unknown]
  - Bone density decreased [Unknown]
  - Anhedonia [Unknown]
  - Depression [Unknown]
  - Renal impairment [Recovered/Resolved]

NARRATIVE: CASE EVENT DATE: 20160504
